FAERS Safety Report 12789112 (Version 1)
Quarter: 2016Q3

REPORT INFORMATION
  Report Type: Spontaneous
  Country: US (occurrence: US)
  Receive Date: 20160928
  Receipt Date: 20160928
  Transmission Date: 20161109
  Serious: Yes (Death, Hospitalization)
  Sender: FDA-Public Use
  Company Number: US-FRESENIUS KABI-FK201607183

PATIENT
  Age: 76 Year
  Sex: Male

DRUGS (2)
  1. ALEMTUZUMAB [Suspect]
     Active Substance: ALEMTUZUMAB
     Indication: CHRONIC LYMPHOCYTIC LEUKAEMIA STAGE 1
     Route: 065
     Dates: start: 201308
  2. FLUDARABINE [Suspect]
     Active Substance: FLUDARABINE PHOSPHATE
     Indication: CHRONIC LYMPHOCYTIC LEUKAEMIA STAGE 1
     Route: 065
     Dates: start: 201308

REACTIONS (4)
  - Neuroendocrine carcinoma of the skin [Fatal]
  - Dyspnoea [Unknown]
  - Autoimmune haemolytic anaemia [Unknown]
  - Pleural effusion [Unknown]
